FAERS Safety Report 6631743-7 (Version None)
Quarter: 2010Q1

REPORT INFORMATION
  Report Type: 
  Country: None (occurrence: None)
  Receive Date: 20100312
  Receipt Date: 20100311
  Transmission Date: 20100710
  Serious: No
  Sender: FDA-Public Use
  Company Number: FR-EISAI INC.-E2020-06184-SPO-FR

PATIENT
  Age: 88 Year
  Sex: Female

DRUGS (5)
  1. ARICEPT [Suspect]
     Indication: DEMENTIA
     Route: 048
     Dates: start: 20100124, end: 20100224
  2. TENORMIN [Interacting]
     Indication: BLOOD PRESSURE INCREASED
     Route: 048
     Dates: end: 20100224
  3. TENORMIN [Interacting]
     Route: 048
     Dates: start: 20100225
  4. ELISOR [Concomitant]
     Route: 048
  5. LEVOTHYROX [Concomitant]
     Indication: HYPOTHYROIDISM
     Route: 048
     Dates: start: 20091201

REACTIONS (2)
  - CONVULSION [None]
  - DRUG INTERACTION [None]
